FAERS Safety Report 6534916-7 (Version None)
Quarter: 2010Q1

REPORT INFORMATION
  Report Type: 
  Country: None (occurrence: None)
  Receive Date: 20100112
  Receipt Date: 20100105
  Transmission Date: 20100710
  Serious: Yes (Death, Other)
  Sender: FDA-Public Use
  Company Number: AT-AMGEN-QUU383244

PATIENT
  Sex: Female
  Weight: 73 kg

DRUGS (9)
  1. NEULASTA [Suspect]
     Indication: CHEMOTHERAPY
     Route: 058
     Dates: start: 20090302
  2. EPIRUBICIN [Concomitant]
  3. PACLITAXEL [Concomitant]
  4. METFORMIN HYDROCHLORIDE [Concomitant]
  5. PANTOPRAZOLE [Concomitant]
  6. SIMVASTATIN [Concomitant]
  7. LEXOTANIL [Concomitant]
  8. ENALAPRIL [Concomitant]
  9. TROSPIUM CHLORIDE [Concomitant]

REACTIONS (3)
  - AGRANULOCYTOSIS [None]
  - PNEUMONIA [None]
  - THERAPEUTIC RESPONSE DECREASED [None]
